FAERS Safety Report 7117649-8 (Version None)
Quarter: 2010Q4

REPORT INFORMATION
  Report Type: 
  Country: None (occurrence: None)
  Receive Date: 20101122
  Receipt Date: 20101111
  Transmission Date: 20110411
  Serious: Yes (Hospitalization)
  Sender: FDA-Public Use
  Company Number: US-AMGEN-USACT2010003588

PATIENT

DRUGS (4)
  1. ETANERCEPT [Suspect]
     Indication: PSORIASIS
     Dosage: 50 MG, 2 TIMES/WK
     Route: 058
     Dates: start: 20060720, end: 20080512
  2. GLUCOPHAGE [Concomitant]
     Dosage: 500 MG, BID
     Route: 048
  3. LISINOPRIL [Concomitant]
     Route: 048
  4. ACTOS [Concomitant]
     Route: 048

REACTIONS (7)
  - ANKLE FRACTURE [None]
  - CONTUSION [None]
  - MUSCULOSKELETAL CHEST PAIN [None]
  - NO THERAPEUTIC RESPONSE [None]
  - RIB FRACTURE [None]
  - ROAD TRAFFIC ACCIDENT [None]
  - TRAUMATIC LUNG INJURY [None]
